FAERS Safety Report 11868589 (Version 1)
Quarter: 2015Q4

REPORT INFORMATION
  Report Type: Spontaneous
  Country: JP (occurrence: JP)
  Receive Date: 20151225
  Receipt Date: 20151225
  Transmission Date: 20160305
  Serious: Yes (Other)
  Sender: FDA-Public Use
  Company Number: JP-AMGEN-JPNSP2015137876

PATIENT
  Age: 75 Year
  Sex: Female

DRUGS (1)
  1. PRALIA [Suspect]
     Active Substance: DENOSUMAB
     Indication: PRODUCT USED FOR UNKNOWN INDICATION
     Dosage: UNK
     Route: 065
     Dates: start: 20151217

REACTIONS (2)
  - Dizziness [Recovered/Resolved]
  - Altered state of consciousness [Recovered/Resolved]
